FAERS Safety Report 15856653 (Version 1)
Quarter: 2019Q1

REPORT INFORMATION
  Report Type: Spontaneous
  Country: US (occurrence: US)
  Receive Date: 20190123
  Receipt Date: 20190123
  Transmission Date: 20190417
  Serious: No
  Sender: FDA-Public Use
  Company Number: US-IPSEN BIOPHARMACEUTICALS, INC.-2019-00875

PATIENT
  Age: 32 Year
  Sex: Female

DRUGS (5)
  1. DYSPORT [Suspect]
     Active Substance: ABOBOTULINUMTOXINA
     Indication: SKIN WRINKLING
     Dosage: 50 UNITS
     Dates: start: 20180829, end: 20180829
  2. RESTYLANE SILK [Suspect]
     Active Substance: HYALURONIC ACID
     Indication: LIP COSMETIC PROCEDURE
     Dosage: 0.1 CC EACH IN VERMILION OF UPPER AND LOWER LIPS
     Dates: start: 20180829, end: 20180829
  3. AMBIEM [Concomitant]
  4. ZOLOFT [Concomitant]
     Active Substance: SERTRALINE HYDROCHLORIDE
  5. ORTHO-LO [Concomitant]
     Indication: CONTRACEPTION

REACTIONS (5)
  - Lip swelling [Not Recovered/Not Resolved]
  - Lip pain [Not Recovered/Not Resolved]
  - Nodule [Not Recovered/Not Resolved]
  - Product use issue [Unknown]
  - Expired product administered [Unknown]

NARRATIVE: CASE EVENT DATE: 201807
